FAERS Safety Report 10239086 (Version 1)
Quarter: 2014Q1

REPORT INFORMATION
  Report Type: Spontaneous
  Country: US (occurrence: None)
  Receive Date: 20140306
  Receipt Date: 20140306
  Transmission Date: 20141002
  Serious: Yes (Hospitalization, Other)
  Sender: FDA-Public Use
  Company Number: 163-21880-13041948

PATIENT
  Age: 74 Year
  Sex: Male

DRUGS (11)
  1. REVLIMID [Suspect]
     Indication: PLASMA CELL MYELOMA
     Dosage: 15 MG, 21 IN 28 D, PO?TEMPORARILY INTERRUPTED
     Route: 048
     Dates: start: 201204
  2. DEXAMETHASONE(DEXAMETHASONE)(UKNOWN) [Concomitant]
  3. HYDROCODONE/ACETAMINOPHEN(REMEDEIN)(UKNOWN) [Concomitant]
  4. LISINOPRIL(LISINOPRIL)(UKNOWN) [Concomitant]
  5. METOPROLOL TARTRATE(METOPROLOL TARTRATE)(UKNOWN) [Concomitant]
  6. BACTRIM(BACTRIM)(UKNOWN) [Concomitant]
  7. ALBUTEROL(SALBUTAMOL)(INHALANT) [Concomitant]
  8. COMBIVENT(COMBIVENT)(INHALANT) [Concomitant]
  9. METOPROLOL SUCCINATE XL (METOPROLOL SUCCINATE)(UKNOWN) [Concomitant]
  10. SIMVASTATIN(SIMVASTATIN)(UKNOWN) [Concomitant]
  11. POTASSIUM(POTASSIUM)(UKNOWN) [Concomitant]

REACTIONS (3)
  - Pneumonia [None]
  - Cardiac failure acute [None]
  - Anaemia [None]
